FAERS Safety Report 5662468-2 (Version None)
Quarter: 2008Q1

REPORT INFORMATION
  Report Type: 
  Country: None (occurrence: None)
  Receive Date: 20080313
  Receipt Date: 20080305
  Transmission Date: 20080703
  Serious: Yes (Other)
  Sender: FDA-Public Use
  Company Number: PHBS2008CR03011

PATIENT
  Age: 43 Year
  Sex: Male

DRUGS (1)
  1. CATAFLAM [Suspect]
     Indication: PHARYNGITIS
     Dosage: 50 MG, UNK
     Route: 048

REACTIONS (1)
  - LARYNGEAL OEDEMA [None]
